FAERS Safety Report 9659329 (Version 1)
Quarter: 2013Q4

REPORT INFORMATION
  Report Type: Spontaneous
  Country: BR (occurrence: BR)
  Receive Date: 20131031
  Receipt Date: 20131031
  Transmission Date: 20140711
  Serious: Yes (Other)
  Sender: FDA-Public Use
  Company Number: BR-SA-2013SA107850

PATIENT
  Sex: Female
  Weight: 62 kg

DRUGS (6)
  1. LANTUS SOLOSTAR [Suspect]
     Indication: DIABETES MELLITUS
     Route: 058
     Dates: start: 2009
  2. LANTUS SOLOSTAR [Suspect]
     Indication: DIABETES MELLITUS
     Route: 058
  3. AVASTIN [Concomitant]
     Indication: EYE PATCH APPLICATION
     Dosage: EVERY THREE MONTHS?ROUTE: OCCULAR
     Dates: start: 2009
  4. VYTORIN [Concomitant]
     Indication: BLOOD CHOLESTEROL ABNORMAL
     Route: 048
     Dates: start: 2008
  5. ONGLYZA [Concomitant]
     Indication: DIABETES MELLITUS
     Route: 048
     Dates: start: 2008
  6. SOLOSTAR [Concomitant]
     Indication: DEVICE THERAPY

REACTIONS (4)
  - Blindness [Not Recovered/Not Resolved]
  - Hyperglycaemia [Not Recovered/Not Resolved]
  - Dizziness [Not Recovered/Not Resolved]
  - Vision blurred [Not Recovered/Not Resolved]
